APPROVED DRUG PRODUCT: FLUOXETINE HYDROCHLORIDE
Active Ingredient: FLUOXETINE HYDROCHLORIDE
Strength: EQ 20MG BASE/5ML
Dosage Form/Route: SOLUTION;ORAL
Application: A077849 | Product #001 | TE Code: AA
Applicant: LANNETT CO INC
Approved: Feb 9, 2007 | RLD: No | RS: No | Type: RX